FAERS Safety Report 14102150 (Version 2)
Quarter: 2017Q4

REPORT INFORMATION
  Report Type: Report from Study
  Country: CN (occurrence: CN)
  Receive Date: 20171018
  Receipt Date: 20171024
  Transmission Date: 20180321
  Serious: Yes (Hospitalization)
  Sender: FDA-Public Use
  Company Number: CN-ASTRAZENECA-2017SF03609

PATIENT
  Age: 24406 Day
  Sex: Male

DRUGS (13)
  1. ASPIRIN. [Concomitant]
     Active Substance: ASPIRIN
     Indication: PLATELET AGGREGATION
     Route: 048
     Dates: start: 20030701
  2. IMDUR [Concomitant]
     Active Substance: ISOSORBIDE MONONITRATE
     Indication: CORONARY ARTERY DISEASE
     Route: 048
     Dates: start: 20030701
  3. NIFEDIPINE CONTROLLED RELEASE TABLETS [Concomitant]
     Indication: HYPERTENSION
     Route: 048
     Dates: start: 20150507
  4. SCILIN M30 [Concomitant]
     Active Substance: INSULIN HUMAN
     Route: 058
     Dates: start: 20160707, end: 20170404
  5. DAPAGLIFLOZIN. [Suspect]
     Active Substance: DAPAGLIFLOZIN
     Indication: TYPE 2 DIABETES MELLITUS
     Route: 048
     Dates: start: 20150505
  6. ACARBOSE. [Concomitant]
     Active Substance: ACARBOSE
     Route: 048
     Dates: start: 19990701
  7. MECOBALAMIN [Concomitant]
     Active Substance: METHYLCOBALAMIN
     Indication: NERVE INJURY
     Route: 048
     Dates: start: 20151217
  8. PLAVIX [Concomitant]
     Active Substance: CLOPIDOGREL BISULFATE
     Indication: VASCULAR STENT OCCLUSION
     Route: 048
     Dates: start: 20030701
  9. MELBINE [Concomitant]
     Route: 048
     Dates: start: 19990701
  10. DIOVAN [Concomitant]
     Active Substance: VALSARTAN
     Indication: HYPERTENSION
     Route: 048
     Dates: start: 20030701
  11. EPALRESTAT [Concomitant]
     Active Substance: EPALRESTAT
     Indication: NEUROPATHY PERIPHERAL
     Route: 048
     Dates: start: 20160623
  12. SCILIN M30 [Concomitant]
     Active Substance: INSULIN HUMAN
     Route: 058
     Dates: start: 20170404
  13. CRESTOR [Concomitant]
     Active Substance: ROSUVASTATIN CALCIUM
     Route: 048
     Dates: start: 20030701

REACTIONS (1)
  - Haematuria [Recovered/Resolved]

NARRATIVE: CASE EVENT DATE: 20171009
